FAERS Safety Report 6039064-0 (Version None)
Quarter: 2009Q1

REPORT INFORMATION
  Report Type: 
  Country: None (occurrence: None)
  Receive Date: 20090115
  Receipt Date: 20081209
  Transmission Date: 20090719
  Serious: Yes (Other)
  Sender: FDA-Public Use
  Company Number: JP-PFIZER INC-2008153828

PATIENT
  Sex: Male
  Weight: 82 kg

DRUGS (4)
  1. CHAMPIX [Suspect]
     Indication: NICOTINE DEPENDENCE
     Dosage: 1 MG, 1X/DAY
     Route: 048
     Dates: start: 20081018
  2. ZOPICLONE [Suspect]
     Indication: INSOMNIA
     Dosage: 10 MG, 1X/DAY
     Route: 048
     Dates: start: 20070401
  3. LENDORMIN [Suspect]
     Indication: INSOMNIA
     Dosage: 0.25 MG, 1X/DAY
     Route: 048
     Dates: start: 20070401
  4. OTHER DERMATOLOGICAL PREPARATIONS [Concomitant]

REACTIONS (6)
  - ALCOHOL INTOLERANCE [None]
  - COMA [None]
  - DIZZINESS [None]
  - DYSPNOEA [None]
  - NAUSEA [None]
  - VISUAL IMPAIRMENT [None]
